FAERS Safety Report 7536379-1 (Version None)
Quarter: 2011Q2

REPORT INFORMATION
  Report Type: 
  Country: None (occurrence: None)
  Receive Date: 20110608
  Receipt Date: 20110608
  Transmission Date: 20111010
  Serious: No
  Sender: FDA-Public Use
  Company Number: None

PATIENT
  Age: 46 Year
  Sex: Female
  Weight: 62.1428 kg

DRUGS (1)
  1. AUGMENTIN '875' [Suspect]
     Indication: LYMPHADENOPATHY
     Dosage: 1 TAB BID PO
     Route: 048
     Dates: start: 20110524, end: 20110603

REACTIONS (10)
  - CONDITION AGGRAVATED [None]
  - SOMNOLENCE [None]
  - FIBROMYALGIA [None]
  - SKIN ATROPHY [None]
  - VULVOVAGINAL DISCOMFORT [None]
  - FATIGUE [None]
  - SKIN EXFOLIATION [None]
  - SKIN IRRITATION [None]
  - SKIN DISORDER [None]
  - MOBILITY DECREASED [None]
